FAERS Safety Report 17913106 (Version 1)
Quarter: 2020Q2

REPORT INFORMATION
  Report Type: Spontaneous
  Country: US (occurrence: US)
  Receive Date: 20200618
  Receipt Date: 20200618
  Transmission Date: 20200714
  Serious: Yes (Hospitalization, Other)
  Sender: FDA-Public Use
  Company Number: US-PFIZER INC-2020236403

PATIENT
  Age: 57 Year
  Sex: Female

DRUGS (11)
  1. HUMIRA [Suspect]
     Active Substance: ADALIMUMAB
     Indication: ANKYLOSING SPONDYLITIS
     Dosage: 40 MILLIGRAM, 1 IN 2WK
     Route: 058
     Dates: start: 2020
  2. LIPITOR [Concomitant]
     Active Substance: ATORVASTATIN CALCIUM
     Dosage: UNK
  3. ENBREL [Suspect]
     Active Substance: ETANERCEPT
     Dosage: UNK
     Route: 065
     Dates: start: 201912
  4. HYDROCHLOROTHIAZIDE. [Concomitant]
     Active Substance: HYDROCHLOROTHIAZIDE
     Dosage: UNK
  5. PREMARIN [Concomitant]
     Active Substance: ESTROGENS, CONJUGATED
     Dosage: UNK
  6. DEXALONE [DEXAMETHASONE] [Concomitant]
     Dosage: UNK
  7. SPIRIVA [Concomitant]
     Active Substance: TIOTROPIUM BROMIDE MONOHYDRATE
     Dosage: UNK
  8. HUMIRA [Suspect]
     Active Substance: ADALIMUMAB
     Indication: RHEUMATOID ARTHRITIS
  9. POTASSIUM [Concomitant]
     Active Substance: POTASSIUM
     Dosage: UNK
  10. BACLOFEN. [Concomitant]
     Active Substance: BACLOFEN
     Dosage: UNK
  11. VANCOMYCIN HCL [Suspect]
     Active Substance: VANCOMYCIN HYDROCHLORIDE
     Dosage: UNK
     Route: 065

REACTIONS (6)
  - Osteoarthritis [Unknown]
  - Weight increased [Unknown]
  - Procedural complication [Unknown]
  - Exostosis [Unknown]
  - Arthropathy [Unknown]
  - Fluid retention [Unknown]
